FAERS Safety Report 9539593 (Version 1)
Quarter: 2013Q3

REPORT INFORMATION
  Report Type: Report from Study
  Country: BR (occurrence: BR)
  Receive Date: 20130920
  Receipt Date: 20130920
  Transmission Date: 20140515
  Serious: Yes (Hospitalization)
  Sender: FDA-Public Use
  Company Number: BR-SANOFI-AVENTIS-2013SA091578

PATIENT
  Age: 14 Year
  Sex: Female
  Weight: 48 kg

DRUGS (2)
  1. CEREZYME [Suspect]
     Indication: GAUCHER^S DISEASE
     Dosage: DOSE: 60 U/KG
     Route: 042
     Dates: start: 20011011
  2. CEREZYME [Suspect]
     Indication: GAUCHER^S DISEASE
     Dosage: DOSE: 54.5 U/KG
     Route: 042

REACTIONS (2)
  - Osteonecrosis [Recovered/Resolved with Sequelae]
  - Movement disorder [Unknown]
